FAERS Safety Report 21977027 (Version 3)
Quarter: 2023Q1

REPORT INFORMATION
  Report Type: Spontaneous
  Country: BG (occurrence: BG)
  Receive Date: 20230210
  Receipt Date: 20230301
  Transmission Date: 20230418
  Serious: Yes (Death, Hospitalization)
  Sender: FDA-Public Use
  Company Number: BG-002147023-NVSC2023BG030033

PATIENT
  Age: 7 Month
  Sex: Female
  Weight: 5.12 kg

DRUGS (1)
  1. ZOLGENSMA [Suspect]
     Active Substance: ONASEMNOGENE ABEPARVOVEC-XIOI
     Indication: Spinal muscular atrophy
     Dosage: 30.3 ML, ONCE/SINGLE
     Route: 042
     Dates: start: 20220210, end: 20220210

REACTIONS (14)
  - Death [Fatal]
  - Weight decreased [Unknown]
  - Lung disorder [Unknown]
  - Haematocrit increased [Unknown]
  - Blood pH increased [Unknown]
  - PO2 abnormal [Unknown]
  - Activated partial thromboplastin time prolonged [Unknown]
  - Blood potassium increased [Unknown]
  - Blood calcium increased [Unknown]
  - Granulocyte count increased [Unknown]
  - Prothrombin time prolonged [Unknown]
  - Blood bicarbonate decreased [Unknown]
  - Blood alkaline phosphatase decreased [Unknown]
  - Blood glucose decreased [Unknown]

NARRATIVE: CASE EVENT DATE: 20220224
